FAERS Safety Report 4798394-0 (Version None)
Quarter: 2005Q4

REPORT INFORMATION
  Report Type: 
  Country: None (occurrence: None)
  Receive Date: 20051014
  Receipt Date: 20051007
  Transmission Date: 20060501
  Serious: Yes (Hospitalization)
  Sender: FDA-Public Use
  Company Number: US-GLAXOSMITHKLINE-A0577495A

PATIENT
  Age: 68 Year
  Sex: Male
  Weight: 70 kg

DRUGS (10)
  1. NICODERM CQ [Suspect]
     Route: 062
     Dates: end: 20051001
  2. NICODERM CQ [Suspect]
     Route: 062
     Dates: start: 20050801
  3. PRAVACHOL [Concomitant]
  4. LASIX [Concomitant]
  5. KLOR-CON [Concomitant]
  6. PACERONE [Concomitant]
  7. PLETAL [Concomitant]
  8. SPIRIVA [Concomitant]
  9. DALMANE [Concomitant]
  10. PRINIVIL [Concomitant]

REACTIONS (5)
  - BLOOD PRESSURE DECREASED [None]
  - DYSSTASIA [None]
  - FATIGUE [None]
  - PNEUMONIA [None]
  - RENAL DISORDER [None]
